FAERS Safety Report 17247852 (Version 1)
Quarter: 2019Q4

REPORT INFORMATION
  Report Type: Spontaneous
  Country: US (occurrence: US)
  Receive Date: 20191213
  Receipt Date: 20191213
  Transmission Date: 20200122
  Serious: Yes (Hospitalization)
  Sender: FDA-Public Use
  Company Number: None

PATIENT
  Age: 14 Year
  Sex: Female

DRUGS (7)
  1. COLCHICINE. [Concomitant]
     Active Substance: COLCHICINE
  2. LEVOTHYROXINE. [Concomitant]
     Active Substance: LEVOTHYROXINE
  3. ESTRADIOL DIS [Concomitant]
  4. METOPROLOL TAR [Concomitant]
     Active Substance: METOPROLOL TARTRATE
  5. CLINDAMYCIN. [Concomitant]
     Active Substance: CLINDAMYCIN
  6. MOMETASONE [Concomitant]
     Active Substance: MOMETASONE
  7. OMNITROPE [Suspect]
     Active Substance: SOMATROPIN
     Indication: TURNER^S SYNDROME
     Route: 058
     Dates: start: 20171031

REACTIONS (2)
  - Therapy cessation [None]
  - Weight decreased [None]

NARRATIVE: CASE EVENT DATE: 20191115
